FAERS Safety Report 10506012 (Version 1)
Quarter: 2014Q4

REPORT INFORMATION
  Report Type: Spontaneous
  Country: US (occurrence: US)
  Receive Date: 20141008
  Receipt Date: 20141008
  Transmission Date: 20150528
  Serious: No
  Sender: FDA-Public Use
  Company Number: US-009507513-1409USA005564

PATIENT
  Age: 77 Year
  Sex: Female
  Weight: 86.17 kg

DRUGS (2)
  1. CORICIDIN HBP FLU [Suspect]
     Active Substance: ACETAMINOPHEN\CHLORPHENIRAMINE MALEATE\DEXTROMETHORPHAN HYDROBROMIDE
     Indication: INFLUENZA
     Dosage: 2 DF, Q6H
     Route: 048
  2. CORICIDIN HBP FLU [Suspect]
     Active Substance: ACETAMINOPHEN\CHLORPHENIRAMINE MALEATE\DEXTROMETHORPHAN HYDROBROMIDE
     Dosage: 2 DF, Q4H
     Route: 048
     Dates: start: 20140522, end: 20140522

REACTIONS (1)
  - Accidental overdose [Unknown]

NARRATIVE: CASE EVENT DATE: 20140522
